FAERS Safety Report 7713007-3 (Version None)
Quarter: 2011Q3

REPORT INFORMATION
  Report Type: 
  Country: None (occurrence: None)
  Receive Date: 20110826
  Receipt Date: 20110817
  Transmission Date: 20111222
  Serious: Yes (Other)
  Sender: FDA-Public Use
  Company Number: US-JNJFOC-20110808475

PATIENT
  Sex: Female

DRUGS (1)
  1. SIMPONI [Suspect]
     Indication: PSORIATIC ARTHROPATHY
     Route: 058
     Dates: start: 20110720, end: 20110720

REACTIONS (5)
  - PNEUMONIA [None]
  - ASTHENIA [None]
  - BRONCHITIS [None]
  - EAR INFECTION [None]
  - SINUSITIS [None]
